FAERS Safety Report 7153932-8 (Version None)
Quarter: 2010Q4

REPORT INFORMATION
  Report Type: 
  Country: None (occurrence: None)
  Receive Date: 20101213
  Receipt Date: 20101207
  Transmission Date: 20110411
  Serious: Yes (Death, Hospitalization)
  Sender: FDA-Public Use
  Company Number: PHHY2010CA83364

PATIENT

DRUGS (1)
  1. PAMIDRONATE DISODIUM [Suspect]
     Indication: OSTEOPENIA

REACTIONS (12)
  - CARDIAC FAILURE [None]
  - CARDIOMEGALY [None]
  - DEATH [None]
  - DILATATION VENTRICULAR [None]
  - GLYCOGEN STORAGE DISORDER [None]
  - LUNG INFILTRATION [None]
  - OXYGEN SATURATION ABNORMAL [None]
  - PERICARDIAL EFFUSION [None]
  - PNEUMOTHORAX [None]
  - PYREXIA [None]
  - RESPIRATORY DISTRESS [None]
  - VENTRICULAR HYPERTROPHY [None]
